FAERS Safety Report 8609529-3 (Version None)
Quarter: 2012Q3

REPORT INFORMATION
  Report Type: 
  Country: None (occurrence: None)
  Receive Date: 20120821
  Receipt Date: 20120814
  Transmission Date: 20120928
  Serious: Yes (Hospitalization)
  Sender: FDA-Public Use
  Company Number: US-PFIZER INC-2012199921

PATIENT
  Age: 16 Year
  Sex: Male

DRUGS (4)
  1. REMICADE [Suspect]
     Indication: COLITIS ULCERATIVE
     Dosage: NO DRUG GIVEN
  2. MESALAMINE [Concomitant]
     Dosage: UNK
     Route: 048
  3. ADVIL [Suspect]
     Indication: TENDONITIS
     Dosage: SEVERAL TIMES DAILY
  4. MERCAPTOPURINE [Concomitant]
     Dosage: UNK

REACTIONS (3)
  - DUODENITIS [None]
  - GASTRITIS [None]
  - CLOSTRIDIAL INFECTION [None]
